FAERS Safety Report 17694898 (Version 2)
Quarter: 2020Q3

REPORT INFORMATION
  Report Type: Spontaneous
  Country: US (occurrence: US)
  Receive Date: 20200422
  Receipt Date: 20200910
  Transmission Date: 20201102
  Serious: No
  Sender: FDA-Public Use
  Company Number: NVSC2020US107494

PATIENT
  Age: 2 Year
  Sex: Male

DRUGS (1)
  1. ZOLGENSMA [Suspect]
     Active Substance: ONASEMNOGENE ABEPARVOVEC-XIOI
     Indication: SPINAL MUSCULAR ATROPHY
     Dosage: 1 IU, ONCE/SINGLE
     Route: 042
     Dates: start: 20191105, end: 20191105

REACTIONS (5)
  - Blood glucose decreased [Recovered/Resolved]
  - Tremor [Unknown]
  - Sleep disorder [Unknown]
  - Mouth ulceration [Unknown]
  - Back disorder [Unknown]
